FAERS Safety Report 7430856-X (Version None)
Quarter: 2011Q2

REPORT INFORMATION
  Report Type: 
  Country: None (occurrence: None)
  Receive Date: 20110421
  Receipt Date: 20110415
  Transmission Date: 20111010
  Serious: Yes (Other)
  Sender: FDA-Public Use
  Company Number: CA-JNJFOC-20110102191

PATIENT
  Sex: Male
  Weight: 70.4 kg

DRUGS (7)
  1. REMICADE [Suspect]
     Indication: CROHN'S DISEASE
     Route: 042
  2. TYLENOL W/ CODEINE NO. 3 [Concomitant]
  3. BENADRYL [Concomitant]
     Indication: PREMEDICATION
     Route: 048
  4. MESALAMINE [Concomitant]
  5. REMICADE [Suspect]
     Dosage: 12TH INFUSION
     Route: 042
  6. REMICADE [Suspect]
     Dosage: 14TH INFUSION
     Route: 042
  7. CELEBREX [Concomitant]

REACTIONS (6)
  - FLUSHING [None]
  - BLOOD PRESSURE INCREASED [None]
  - INFUSION RELATED REACTION [None]
  - CHILLS [None]
  - TACHYCARDIA [None]
  - PALLOR [None]
